FAERS Safety Report 14179063 (Version 1)
Quarter: 2017Q4

REPORT INFORMATION
  Report Type: Spontaneous
  Country: US (occurrence: US)
  Receive Date: 20171110
  Receipt Date: 20171110
  Transmission Date: 20180321
  Serious: No
  Sender: FDA-Public Use
  Company Number: US-ASTRAZENECA-2017SF13531

PATIENT
  Sex: Female

DRUGS (1)
  1. BYETTA [Suspect]
     Active Substance: EXENATIDE
     Dosage: 250 MCG / 1.2 ML, 5 MCG, UNKNOWN
     Route: 058

REACTIONS (3)
  - Dyspnoea [Unknown]
  - Pulmonary mass [Unknown]
  - Cough [Unknown]
